FAERS Safety Report 10076906 (Version 1)
Quarter: 2014Q2

REPORT INFORMATION
  Report Type: Spontaneous
  Country: US (occurrence: US)
  Receive Date: 20140414
  Receipt Date: 20140414
  Transmission Date: 20141212
  Serious: Yes (Hospitalization)
  Sender: FDA-Public Use
  Company Number: US-GLAXOSMITHKLINE-A1069125A

PATIENT
  Age: 61 Year
  Sex: Male

DRUGS (7)
  1. ADVAIR HFA [Suspect]
     Indication: CHRONIC OBSTRUCTIVE PULMONARY DISEASE
     Dosage: 2PUFF AS REQUIRED
     Route: 055
  2. ADVAIR HFA [Suspect]
     Indication: CHRONIC OBSTRUCTIVE PULMONARY DISEASE
     Dosage: 1PUFF TWICE PER DAY
     Route: 055
     Dates: start: 20140305
  3. CELEXA [Concomitant]
  4. MS CONTIN [Concomitant]
  5. OXYCODONE [Concomitant]
  6. SPIRIVA [Concomitant]
  7. GABAPENTIN [Concomitant]

REACTIONS (3)
  - Liver transplant [Recovered/Resolved]
  - Nervous system disorder [Not Recovered/Not Resolved]
  - Off label use [Unknown]
